FAERS Safety Report 17571932 (Version 1)
Quarter: 2020Q1

REPORT INFORMATION
  Report Type: Spontaneous
  Country: US (occurrence: US)
  Receive Date: 20200321
  Receipt Date: 20200321
  Transmission Date: 20200409
  Serious: No
  Sender: FDA-Public Use
  Company Number: None

PATIENT
  Age: 39 Year
  Sex: Female
  Weight: 62.55 kg

DRUGS (7)
  1. NASACORT [Concomitant]
     Active Substance: TRIAMCINOLONE ACETONIDE
  2. XYZAL [Concomitant]
     Active Substance: LEVOCETIRIZINE DIHYDROCHLORIDE
  3. BREO ELLIPTA [Suspect]
     Active Substance: FLUTICASONE FUROATE\VILANTEROL TRIFENATATE
     Indication: ASTHMA
     Dosage: ?          OTHER STRENGTH:MCG;QUANTITY:1 INHALATION(S);?
     Route: 055
     Dates: start: 20200321, end: 20200321
  4. VENTOLIN [Concomitant]
     Active Substance: ALBUTEROL SULFATE
  5. DRINK TRUE MEAL REPLACEMENT SHAKE [Concomitant]
  6. ADDERALL [Concomitant]
     Active Substance: AMPHETAMINE ASPARTATE\AMPHETAMINE SULFATE\DEXTROAMPHETAMINE SACCHARATE\DEXTROAMPHETAMINE SULFATE
  7. LEVOTHYROXINE. [Concomitant]
     Active Substance: LEVOTHYROXINE

REACTIONS (6)
  - Hypersensitivity [None]
  - Cough [None]
  - Dry throat [None]
  - Pruritus [None]
  - Dizziness [None]
  - Erythema [None]

NARRATIVE: CASE EVENT DATE: 20200321
